FAERS Safety Report 11689641 (Version 2)
Quarter: 2016Q1

REPORT INFORMATION
  Report Type: Spontaneous
  Country: JP (occurrence: JP)
  Receive Date: 20151102
  Receipt Date: 20160104
  Transmission Date: 20160525
  Serious: No
  Sender: FDA-Public Use
  Company Number: JP-PFIZER INC-2015369350

PATIENT
  Age: 25 Year
  Sex: Female

DRUGS (3)
  1. CERCINE [Concomitant]
     Active Substance: DIAZEPAM
     Indication: STATUS EPILEPTICUS
     Dosage: 2.5 MG X 1,
     Route: 042
     Dates: start: 20151011
  2. CERCINE [Concomitant]
     Active Substance: DIAZEPAM
     Dosage: 5 MG X 1
     Route: 042
     Dates: start: 20151011
  3. FOSPHENYTOIN SODIUM. [Suspect]
     Active Substance: FOSPHENYTOIN SODIUM
     Indication: STATUS EPILEPTICUS
     Dosage: 1125 MG,  DAILY,1/7 MINUTES
     Route: 042
     Dates: start: 20151011, end: 20151011

REACTIONS (1)
  - Pruritus [Recovered/Resolved]

NARRATIVE: CASE EVENT DATE: 20151011
